FAERS Safety Report 13570883 (Version 1)
Quarter: 2017Q2

REPORT INFORMATION
  Report Type: Spontaneous
  Country: PL (occurrence: PL)
  Receive Date: 20170523
  Receipt Date: 20170523
  Transmission Date: 20170830
  Serious: Yes (Other)
  Sender: FDA-Public Use
  Company Number: PL-AUROBINDO-AUR-APL-2017-34268

PATIENT
  Age: 49 Year
  Sex: Female

DRUGS (2)
  1. OLANZAPINE 5MG [Suspect]
     Active Substance: OLANZAPINE
     Indication: PSYCHOTIC DISORDER
     Dosage: 5 MG, UNK
     Route: 065
  2. BIPERIDEN [Concomitant]
     Active Substance: BIPERIDEN
     Indication: PSYCHOTIC DISORDER
     Dosage: 2 MG, UNK

REACTIONS (1)
  - Body temperature increased [Unknown]
